FAERS Safety Report 9005701 (Version 1)
Quarter: 2013Q1

REPORT INFORMATION
  Report Type: Spontaneous
  Country: US (occurrence: US)
  Receive Date: 20130109
  Receipt Date: 20130109
  Transmission Date: 20140127
  Serious: No
  Sender: FDA-Public Use
  Company Number: US-ABBOTT-12P-163-0912949-00

PATIENT
  Sex: Male

DRUGS (5)
  1. VICODIN [Suspect]
     Indication: PAIN MANAGEMENT
  2. FENTANYL [Suspect]
     Indication: PAIN MANAGEMENT
  3. ATENOLOL [Concomitant]
     Indication: CARDIOVASCULAR DISORDER
  4. LYRICA [Concomitant]
     Indication: NERVOUS SYSTEM DISORDER
     Dosage: AS A RESULT OF MULTIPLE BACK SURGERIES
  5. AMBIEN [Concomitant]
     Indication: INSOMNIA

REACTIONS (1)
  - Drug effect incomplete [Unknown]
